FAERS Safety Report 5193512-7 (Version None)
Quarter: 2006Q4

REPORT INFORMATION
  Report Type: 
  Country: None (occurrence: None)
  Receive Date: 20061228
  Receipt Date: 20060406
  Transmission Date: 20070319
  Serious: No
  Sender: FDA-Public Use
  Company Number: PAR-2823-AE

PATIENT
  Age: 60 Year
  Sex: Female

DRUGS (5)
  1. FLUTICASONE PROPIONATE [Suspect]
     Indication: MULTIPLE ALLERGIES
     Dosage: 2SPR PER DAY
     Route: 045
     Dates: start: 20060321
  2. TRICOR [Concomitant]
     Indication: DRUG USE FOR UNKNOWN INDICATION
     Dates: start: 20060213
  3. IMITREX [Concomitant]
     Indication: DRUG USE FOR UNKNOWN INDICATION
  4. RITALIN [Concomitant]
     Indication: DRUG USE FOR UNKNOWN INDICATION
  5. VALIUM [Concomitant]
     Indication: DRUG USE FOR UNKNOWN INDICATION

REACTIONS (1)
  - DRUG INEFFECTIVE [None]
